FAERS Safety Report 6918583-6 (Version None)
Quarter: 2010Q3

REPORT INFORMATION
  Report Type: 
  Country: None (occurrence: None)
  Receive Date: 20100811
  Receipt Date: 20100727
  Transmission Date: 20110219
  Serious: Yes (Death, Other)
  Sender: FDA-Public Use
  Company Number: JP-BAYER-201035320GPV

PATIENT
  Age: 59 Year
  Sex: Male

DRUGS (4)
  1. FLUDARABINE [Suspect]
     Indication: BURKITT'S LYMPHOMA
  2. MELPHALAN [Suspect]
     Indication: BURKITT'S LYMPHOMA
  3. ETOPOSIDE [Suspect]
     Indication: BURKITT'S LYMPHOMA
  4. METHOTREXATE [Concomitant]
     Indication: BURKITT'S LYMPHOMA
     Dosage: HIGH-DOSE, TWO COURSES

REACTIONS (5)
  - ACUTE GRAFT VERSUS HOST DISEASE [None]
  - BURKITT'S LYMPHOMA [None]
  - CHOLANGITIS ACUTE [None]
  - FUNGAL INFECTION [None]
  - SEPTIC SHOCK [None]
